FAERS Safety Report 11759802 (Version 1)
Quarter: 2015Q4

REPORT INFORMATION
  Report Type: Spontaneous
  Country: US (occurrence: None)
  Receive Date: 20151119
  Receipt Date: 20151119
  Transmission Date: 20160304
  Serious: Yes (Life-Threatening)
  Sender: FDA-Public Use
  Company Number: None

PATIENT
  Age: 21 Year
  Sex: Female
  Weight: 58.97 kg

DRUGS (2)
  1. ADVIL [Concomitant]
     Active Substance: IBUPROFEN
  2. SKYLA [Suspect]
     Active Substance: LEVONORGESTREL
     Dates: start: 20150531, end: 20150801

REACTIONS (6)
  - Crying [None]
  - Anxiety [None]
  - Depression [None]
  - Self-injurious ideation [None]
  - Condition aggravated [None]
  - Suicidal ideation [None]

NARRATIVE: CASE EVENT DATE: 20150701
